FAERS Safety Report 16637740 (Version 5)
Quarter: 2019Q3

REPORT INFORMATION
  Report Type: Spontaneous
  Country: ES (occurrence: ES)
  Receive Date: 20190726
  Receipt Date: 20190923
  Transmission Date: 20191004
  Serious: Yes (Death, Hospitalization, Other)
  Sender: FDA-Public Use
  Company Number: ES-PFIZER INC-2019319106

PATIENT
  Age: 61 Year
  Sex: Female
  Weight: 52.4 kg

DRUGS (12)
  1. MIRTAZAPINE. [Concomitant]
     Active Substance: MIRTAZAPINE
     Dosage: 15 MG, 1X/DAY
     Dates: start: 20161115
  2. DEXIBUPROFEN [Concomitant]
     Active Substance: DEXIBUPROFEN
     Dosage: 400 MG, 1X/DAY
     Dates: start: 20091230
  3. ACFOL [Concomitant]
     Active Substance: FOLIC ACID
     Dosage: 5 UNK, UNK
  4. STILNOX [Concomitant]
     Active Substance: ZOLPIDEM TARTRATE
     Dosage: 10 MG, 1X/DAY
     Dates: start: 20080902
  5. LEDERFOLIN [Concomitant]
     Active Substance: LEUCOVORIN CALCIUM
     Dosage: 30 MG, 1X/DAY
     Dates: start: 20040617
  6. ENALAPRIL [Concomitant]
     Active Substance: ENALAPRIL
     Dosage: 5 MG, 1X/DAY
     Dates: start: 20130813
  7. XELJANZ [Suspect]
     Active Substance: TOFACITINIB CITRATE
     Indication: RHEUMATOID ARTHRITIS
     Dosage: 5 MG, 2X/DAY (EVERY 12 HOURS)
     Route: 048
     Dates: start: 20190413, end: 20190626
  8. ZAMENE [Concomitant]
     Active Substance: DEFLAZACORT
     Dosage: 6
  9. OMEPRAZOLE. [Concomitant]
     Active Substance: OMEPRAZOLE
     Dosage: 20 MG, 1X/DAY
     Dates: start: 20040617
  10. METHOTREXATE. [Concomitant]
     Active Substance: METHOTREXATE
     Dosage: 10 MG, 1X/DAY
     Dates: start: 20160808
  11. METHYLPREDNISOLONE. [Concomitant]
     Active Substance: METHYLPREDNISOLONE
     Dosage: 2 MG, 1X/DAY
     Dates: start: 20190327
  12. TORASEMIDE [Concomitant]
     Active Substance: TORSEMIDE
     Dosage: 2.5 MG, 1X/DAY
     Dates: start: 20190212

REACTIONS (6)
  - Pneumocystis jirovecii pneumonia [Fatal]
  - Urinary tract infection [Recovering/Resolving]
  - Respiratory failure [Recovering/Resolving]
  - Pyelonephritis [Unknown]
  - Pyrexia [Unknown]
  - Pneumonia [Fatal]

NARRATIVE: CASE EVENT DATE: 20190624
